FAERS Safety Report 6872981-8 (Version None)
Quarter: 2010Q3

REPORT INFORMATION
  Report Type: 
  Country: None (occurrence: None)
  Receive Date: 20100723
  Receipt Date: 20081113
  Transmission Date: 20110219
  Serious: No
  Sender: FDA-Public Use
  Company Number: US-PFIZER INC-2008097446

PATIENT
  Sex: Male
  Weight: 125 kg

DRUGS (2)
  1. CHANTIX [Suspect]
     Indication: SMOKING CESSATION THERAPY
     Dates: start: 20080928, end: 20081003
  2. IBUPROFEN [Concomitant]

REACTIONS (3)
  - IRRITABILITY [None]
  - MALAISE [None]
  - PERSONALITY CHANGE [None]
